FAERS Safety Report 7945918-8 (Version None)
Quarter: 2011Q4

REPORT INFORMATION
  Report Type: 
  Country: None (occurrence: None)
  Receive Date: 20111129
  Receipt Date: 20111123
  Transmission Date: 20120403
  Serious: Yes (Hospitalization, Other)
  Sender: FDA-Public Use
  Company Number: PHEH2009US13008

PATIENT
  Sex: Female

DRUGS (15)
  1. ZOMETA [Suspect]
     Indication: BONE LOSS
     Dosage: 4 MG, UNK
     Route: 042
     Dates: start: 20060201, end: 20060322
  2. COMPAZINE [Concomitant]
  3. AREDIA [Suspect]
     Indication: OSTEOPOROSIS
  4. ZOFRAN [Concomitant]
  5. CYTOXAN [Concomitant]
  6. ZOMETA [Suspect]
     Indication: OSTEOPOROSIS
  7. AVASTIN [Concomitant]
  8. TAMOXIFEN CITRATE [Concomitant]
  9. ACIPHEX [Concomitant]
  10. LORAZEPAM [Concomitant]
  11. VICODIN [Concomitant]
  12. OXYCONTIN [Concomitant]
  13. HERCEPTIN [Concomitant]
  14. TAXOTERE [Concomitant]
  15. AREDIA [Suspect]
     Indication: BONE LOSS
     Dosage: 90 MG, UNK
     Route: 042

REACTIONS (31)
  - PAIN [None]
  - LACERATION [None]
  - ABDOMINAL PAIN [None]
  - GINGIVAL PAIN [None]
  - RETINOPATHY HYPERTENSIVE [None]
  - ESSENTIAL HYPERTENSION [None]
  - TENDERNESS [None]
  - EXPOSED BONE IN JAW [None]
  - DYSPNOEA [None]
  - GASTRITIS [None]
  - VOMITING [None]
  - EMOTIONAL DISTRESS [None]
  - OSTEONECROSIS OF JAW [None]
  - TRICUSPID VALVE INCOMPETENCE [None]
  - CARDIOMYOPATHY [None]
  - POLYNEUROPATHY [None]
  - SKIN PAPILLOMA [None]
  - URINARY TRACT INFECTION [None]
  - AORTIC VALVE INCOMPETENCE [None]
  - INGROWING NAIL [None]
  - BONE PAIN [None]
  - MITRAL VALVE INCOMPETENCE [None]
  - DIARRHOEA [None]
  - INJURY [None]
  - MUSCULOSKELETAL CHEST PAIN [None]
  - ARTHRALGIA [None]
  - GASTROOESOPHAGEAL REFLUX DISEASE [None]
  - ARTERIOSCLEROSIS CORONARY ARTERY [None]
  - DYSURIA [None]
  - NAUSEA [None]
  - WOUND DEHISCENCE [None]
